FAERS Safety Report 15796391 (Version 1)
Quarter: 2019Q1

REPORT INFORMATION
  Report Type: Spontaneous
  Country: CN (occurrence: CN)
  Receive Date: 20190108
  Receipt Date: 20190108
  Transmission Date: 20190417
  Serious: Yes (Other)
  Sender: FDA-Public Use
  Company Number: CN-ROCHE-2238537

PATIENT
  Age: 47 Year
  Sex: Female

DRUGS (12)
  1. CAPECITABINE. [Suspect]
     Active Substance: CAPECITABINE
     Indication: ADENOCARCINOMA OF COLON
     Dosage: 1.5 G PER MORNING, 2 G PER NIGHT, BID, D1-D14, 2 CYCLES
     Route: 048
     Dates: start: 20150604
  2. FOLINIC ACID [Concomitant]
     Active Substance: LEUCOVORIN
     Indication: ADENOCARCINOMA OF COLON
     Dosage: 1 CYCLES
     Route: 065
     Dates: start: 20151028
  3. BEVACIZUMAB. [Suspect]
     Active Substance: BEVACIZUMAB
     Indication: ADENOCARCINOMA OF COLON
     Dosage: 1 CYCLES
     Route: 065
     Dates: start: 20151028
  4. 5-FU [Suspect]
     Active Substance: FLUOROURACIL
     Dosage: 25 CYCLES
     Route: 065
     Dates: start: 20151204, end: 20170603
  5. IRINOTECAN [Concomitant]
     Active Substance: IRINOTECAN
     Indication: ADENOCARCINOMA OF COLON
     Dosage: 1 CYCLES
     Route: 065
     Dates: start: 20151028
  6. OXALIPLATIN. [Concomitant]
     Active Substance: OXALIPLATIN
     Indication: ADENOCARCINOMA OF COLON
     Dosage: D1, 2 CYCLES
     Route: 041
     Dates: start: 20150604, end: 20150629
  7. OXALIPLATIN. [Concomitant]
     Active Substance: OXALIPLATIN
     Dosage: D1, 2 CYCLES
     Route: 041
     Dates: start: 20150805, end: 20150829
  8. CALCIUM FOLINATE [Concomitant]
     Active Substance: LEUCOVORIN CALCIUM
     Dosage: IV DROP, D1
     Route: 042
     Dates: start: 20140107, end: 20141030
  9. 5-FU [Suspect]
     Active Substance: FLUOROURACIL
     Indication: ADENOCARCINOMA OF COLON
     Dosage: 1 CYCLE
     Route: 065
     Dates: start: 20151028
  10. CALCIUM FOLINATE [Concomitant]
     Active Substance: LEUCOVORIN CALCIUM
     Dosage: IV DROP, D1
     Route: 042
     Dates: start: 20140607, end: 20141030
  11. CAPECITABINE. [Suspect]
     Active Substance: CAPECITABINE
     Dosage: 1.5 G PER MORNING, 2 G PER NIGHT, BID, D1-D14, 2 CYCLES
     Route: 048
     Dates: start: 20150805
  12. BEVACIZUMAB. [Suspect]
     Active Substance: BEVACIZUMAB
     Dosage: 25 CYCLES
     Route: 065
     Dates: start: 20151204, end: 20170603

REACTIONS (8)
  - Febrile neutropenia [Unknown]
  - Liver injury [Unknown]
  - Anaemia [Unknown]
  - Neutropenia [Unknown]
  - Fatigue [Unknown]
  - Gastrointestinal disorder [Unknown]
  - Bone marrow failure [Unknown]
  - Thrombocytopenia [Unknown]
